FAERS Safety Report 7793383-6 (Version None)
Quarter: 2011Q4

REPORT INFORMATION
  Report Type: 
  Country: None (occurrence: None)
  Receive Date: 20111003
  Receipt Date: 20110926
  Transmission Date: 20120403
  Serious: Yes (Death, Other)
  Sender: FDA-Public Use
  Company Number: US-SANOFI-AVENTIS-2011SA062763

PATIENT
  Sex: Male

DRUGS (2)
  1. HUMALOG [Concomitant]
     Dates: end: 20110728
  2. LANTUS [Suspect]
     Route: 065
     Dates: end: 20110701

REACTIONS (1)
  - HEPATIC NEOPLASM MALIGNANT [None]
